FAERS Safety Report 5951238-3 (Version None)
Quarter: 2008Q4

REPORT INFORMATION
  Report Type: 
  Country: None (occurrence: None)
  Receive Date: 20081113
  Receipt Date: 20081110
  Transmission Date: 20090506
  Serious: Yes (Death)
  Sender: FDA-Public Use
  Company Number: ES-BRISTOL-MYERS SQUIBB COMPANY-14395719

PATIENT
  Age: 63 Year
  Sex: Female

DRUGS (2)
  1. ORENCIA [Suspect]
     Indication: RHEUMATOID ARTHRITIS
     Route: 042
     Dates: start: 20080710
  2. CORTICOSTEROID [Suspect]
     Dosage: AT LOW DOSES ({7.5)

REACTIONS (2)
  - HEPATIC NEOPLASM MALIGNANT [None]
  - METASTASES TO LUNG [None]
